FAERS Safety Report 7651508-7 (Version None)
Quarter: 2011Q3

REPORT INFORMATION
  Report Type: 
  Country: None (occurrence: None)
  Receive Date: 20110802
  Receipt Date: 20110725
  Transmission Date: 20111222
  Serious: Yes (Hospitalization, Other)
  Sender: FDA-Public Use
  Company Number: PHHO2010JP19714

PATIENT
  Sex: Male

DRUGS (20)
  1. SANDIMMUNE [Suspect]
     Indication: RENAL TRANSPLANT
     Dosage: 2 MG, UNK
     Route: 042
     Dates: start: 20090513
  2. MEDROL [Suspect]
     Dosage: 8 MG, UNK
     Route: 048
     Dates: start: 20101207
  3. MAGNESIUM OXIDE [Concomitant]
     Indication: CONSTIPATION
     Dosage: 4.5 MG, UNK
     Route: 048
     Dates: start: 20100302
  4. LIPITOR [Concomitant]
     Indication: HYPERLIPIDAEMIA
     Dosage: 10 MG, UNK
     Route: 048
     Dates: start: 20100607
  5. ASPIRIN [Concomitant]
     Indication: THROMBOSIS PROPHYLAXIS
     Dosage: 100 MG, UNK
     Route: 048
     Dates: start: 20100908
  6. ISODINE [Concomitant]
     Indication: INFECTION PROPHYLAXIS
     Dosage: UNK
     Dates: start: 20090514
  7. ALOSENN [Concomitant]
     Indication: CONSTIPATION
     Dosage: 0.5 DF, UNK
     Route: 048
     Dates: start: 20090520
  8. DIFFERIN [Concomitant]
     Indication: SKIN PAPILLOMA
     Dosage: UNK
     Route: 062
     Dates: start: 20101130
  9. CERTICAN [Suspect]
     Dosage: 1.5 MG, UNK
     Route: 048
     Dates: start: 20100407
  10. NEORAL [Suspect]
     Indication: RENAL TRANSPLANT
     Dosage: 100 MG, UNK
     Route: 048
     Dates: start: 20090517
  11. DIOVAN [Concomitant]
     Indication: HYPERTENSION
     Dosage: 20 MG, UNK
     Route: 048
     Dates: start: 20100701
  12. BASEN [Concomitant]
     Indication: GLUCOSE TOLERANCE IMPAIRED
     Dosage: 0.6 MG, UNK
     Dates: start: 20090721
  13. MEDROL [Suspect]
     Indication: RENAL TRANSPLANT
     Dosage: 4 MG, UNK
     Route: 048
     Dates: start: 20090522, end: 20101013
  14. TAGAMET [Concomitant]
     Indication: PROPHYLAXIS AGAINST GASTROINTESTINAL ULCER
     Dosage: 200 MG, UNK
     Dates: start: 20090513
  15. DALACIN T [Concomitant]
     Indication: ACNE
     Dosage: UNK
     Route: 061
     Dates: start: 20090611
  16. NITROGEN LIQUID [Concomitant]
     Indication: SKIN PAPILLOMA
     Dosage: UNK
     Route: 061
     Dates: start: 20091116
  17. CERTICAN [Suspect]
     Indication: RENAL TRANSPLANT
     Dosage: 0.75 MG, UNK
     Route: 048
     Dates: start: 20090514
  18. NEORAL [Suspect]
     Dosage: 125 MG, UNK
     Route: 048
     Dates: start: 20101116
  19. METHYLPREDNISOLONE SODIUM SUCCINATE [Concomitant]
     Indication: PROPHYLAXIS AGAINST TRANSPLANT REJECTION
     Dosage: 1000 MG, UNK
     Route: 041
     Dates: start: 20101014
  20. KERATINAMIN [Concomitant]
     Indication: HYPERKERATOSIS PALMARIS AND PLANTARIS
     Dosage: UNK
     Route: 062
     Dates: start: 20100511

REACTIONS (6)
  - CYTOMEGALOVIRUS INFECTION [None]
  - DYSPNOEA [None]
  - PYREXIA [None]
  - PNEUMOMEDIASTINUM [None]
  - INTERSTITIAL LUNG DISEASE [None]
  - PNEUMOCYSTIS JIROVECI PNEUMONIA [None]
